FAERS Safety Report 5614011-1 (Version None)
Quarter: 2008Q1

REPORT INFORMATION
  Report Type: 
  Country: None (occurrence: None)
  Receive Date: 20080205
  Receipt Date: 20080125
  Transmission Date: 20080703
  Serious: Yes (Hospitalization)
  Sender: FDA-Public Use
  Company Number: TH-ROCHE-503905

PATIENT
  Age: 56 Year
  Sex: Male
  Weight: 46 kg

DRUGS (3)
  1. PEG-INTERFERON ALFA 2A (RO 25-8310) [Suspect]
     Route: 058
     Dates: start: 20070201, end: 20070628
  2. PEG-INTERFERON ALFA 2A (RO 25-8310) [Suspect]
     Route: 058
     Dates: start: 20070705
  3. RIBAVIRIN [Suspect]
     Route: 048
     Dates: start: 20070201

REACTIONS (2)
  - BACK PAIN [None]
  - SEPTIC SHOCK [None]
